FAERS Safety Report 5213660-2 (Version None)
Quarter: 2007Q1

REPORT INFORMATION
  Report Type: 
  Country: None (occurrence: None)
  Receive Date: 20070119
  Receipt Date: 20070109
  Transmission Date: 20070707
  Serious: Yes (Other)
  Sender: FDA-Public Use
  Company Number: US-PFIZER INC-2007003778

PATIENT
  Sex: Female

DRUGS (2)
  1. LYRICA [Suspect]
     Indication: NEURALGIA
     Dates: start: 20070105, end: 20070108
  2. ULTRAM [Concomitant]

REACTIONS (3)
  - HEADACHE [None]
  - PALPITATIONS [None]
  - SOMNOLENCE [None]
